FAERS Safety Report 5424202-0 (Version None)
Quarter: 2007Q3

REPORT INFORMATION
  Report Type: 
  Country: None (occurrence: None)
  Receive Date: 20070726
  Receipt Date: 20060905
  Transmission Date: 20080115
  Serious: Yes (Death, Hospitalization)
  Sender: FDA-Public Use
  Company Number: DRON00207000463

PATIENT
  Sex: Male
  Weight: 66.5 kg

DRUGS (12)
  1. DRONABINOL [Suspect]
     Indication: DECREASED APPETITE
     Dosage: SEE IMAGE
     Route: 048
     Dates: start: 19911204, end: 19920101
  2. DRONABINOL [Suspect]
     Indication: DECREASED APPETITE
     Dosage: SEE IMAGE
     Route: 048
     Dates: start: 19920101, end: 19920404
  3. MYAMBUTOL [Concomitant]
  4. RIFADIN [Concomitant]
  5. LAMPRENE [Concomitant]
  6. AMIKACIN [Concomitant]
  7. GANCICLOVIR [Concomitant]
  8. SELDANE (EPOETIN ALFA) [Concomitant]
  9. MYCELEX [Concomitant]
  10. FLUCONAZOLE [Concomitant]
  11. REGLAN [Concomitant]
  12. NTAMIDINE (PENTAMIDINE) [Concomitant]

REACTIONS (1)
  - PNEUMOCYSTIS JIROVECI PNEUMONIA [None]
